FAERS Safety Report 15897010 (Version 5)
Quarter: 2019Q1

REPORT INFORMATION
  Report Type: Spontaneous
  Country: BR (occurrence: BR)
  Receive Date: 20190131
  Receipt Date: 20190301
  Transmission Date: 20190417
  Serious: Yes (Life-Threatening, Hospitalization, Other)
  Sender: FDA-Public Use
  Company Number: BR-ALEXION PHARMACEUTICALS INC.-A201900637

PATIENT
  Sex: Female
  Weight: 53.5 kg

DRUGS (2)
  1. SOLIRIS [Suspect]
     Active Substance: ECULIZUMAB
     Dosage: 1200 MG EVERY 14 DAYS
     Route: 042
     Dates: start: 20140929
  2. SOLIRIS [Suspect]
     Active Substance: ECULIZUMAB
     Indication: ATYPICAL HAEMOLYTIC URAEMIC SYNDROME
     Dosage: 900 MG EVERY 7 DAYS
     Route: 042
     Dates: start: 20140901, end: 20140922

REACTIONS (13)
  - Epistaxis [Recovered/Resolved]
  - Headache [Unknown]
  - Malaise [Recovered/Resolved]
  - Asphyxia [Unknown]
  - Dyspnoea [Recovered/Resolved]
  - Sinusitis [Unknown]
  - Haemoglobin decreased [Unknown]
  - Anxiety [Unknown]
  - Eye haemorrhage [Unknown]
  - Pain [Unknown]
  - Hypovolaemic shock [Recovered/Resolved]
  - Blood disorder [Recovered/Resolved]
  - Pyrexia [Unknown]

NARRATIVE: CASE EVENT DATE: 2017
